FAERS Safety Report 10090633 (Version 1)
Quarter: 2014Q2

REPORT INFORMATION
  Report Type: Spontaneous
  Country: US (occurrence: US)
  Receive Date: 20140421
  Receipt Date: 20140421
  Transmission Date: 20141212
  Serious: Yes (Hospitalization)
  Sender: FDA-Public Use
  Company Number: US-009507513-1404USA008669

PATIENT
  Age: 30 Year
  Sex: Female

DRUGS (2)
  1. NOXAFIL [Suspect]
     Indication: ANTIFUNGAL PROPHYLAXIS
     Dosage: 300 MG, ONCE DAILY
     Route: 048
     Dates: start: 201403, end: 20140407
  2. NOXAFIL [Suspect]
     Dosage: UNK
     Route: 048
     Dates: start: 201312, end: 201403

REACTIONS (2)
  - Rash maculo-papular [Recovering/Resolving]
  - Incorrect drug dosage form administered [Unknown]
